FAERS Safety Report 7341815-X (Version None)
Quarter: 2011Q1

REPORT INFORMATION
  Report Type: 
  Country: None (occurrence: None)
  Receive Date: 20110309
  Receipt Date: 20110228
  Transmission Date: 20110831
  Serious: Yes (Hospitalization)
  Sender: FDA-Public Use
  Company Number: JP-AMGEN-JPNCT2010011103

PATIENT
  Age: 72 Year
  Sex: Male
  Weight: 54 kg

DRUGS (12)
  1. PANITUMUMAB [Suspect]
     Indication: COLORECTAL CANCER
     Dosage: 6 MG/KG, Q2WK
     Route: 041
     Dates: start: 20101021, end: 20101202
  2. CORTICOSTEROIDS [Concomitant]
     Indication: PROPHYLAXIS
     Route: 065
  3. PANITUMUMAB [Suspect]
     Dosage: 1.8 MG/KG, Q2WK
     Route: 041
     Dates: start: 20101221
  4. OXALIPLATIN [Concomitant]
     Indication: COLORECTAL CANCER
     Dosage: 130 MG, UNK
     Dates: start: 20101021
  5. ANTIHISTAMINES [Concomitant]
     Indication: PROPHYLAXIS
     Route: 065
  6. HIRUDOID [Concomitant]
     Route: 062
  7. FLUOROURACIL [Concomitant]
     Indication: COLORECTAL CANCER
     Dosage: 600 MG, Q2WK
     Route: 040
     Dates: start: 20101021
  8. FLUOROURACIL [Concomitant]
     Dosage: 3500 MG, Q2WK
     Route: 041
     Dates: start: 20101021
  9. ALMETA [Concomitant]
     Route: 062
  10. RINDERON-VG [Concomitant]
     Route: 062
  11. CALCIUM LEVOFOLINATE [Concomitant]
     Indication: COLORECTAL CANCER
     Dosage: 300 MG, Q2WK
     Route: 041
     Dates: start: 20101021
  12. MYSER [Concomitant]
     Route: 062

REACTIONS (3)
  - DUODENAL ULCER [None]
  - DERMATITIS ACNEIFORM [None]
  - STOMATITIS [None]
